FAERS Safety Report 9596647 (Version 1)
Quarter: 2013Q4

REPORT INFORMATION
  Report Type: Spontaneous
  Country: US (occurrence: US)
  Receive Date: 20131004
  Receipt Date: 20131004
  Transmission Date: 20140711
  Serious: Yes (Hospitalization, Other)
  Sender: FDA-Public Use
  Company Number: US-TEVA-435788USA

PATIENT
  Age: 71 Year
  Sex: Female

DRUGS (1)
  1. WARFARIN [Suspect]
     Indication: ANTICOAGULANT THERAPY
     Route: 065
     Dates: start: 1994

REACTIONS (4)
  - Gastrointestinal haemorrhage [Unknown]
  - Thrombophlebitis septic [Unknown]
  - Cellulitis [Unknown]
  - Hip disarticulation [Unknown]
